FAERS Safety Report 4749099-3 (Version None)
Quarter: 2005Q3

REPORT INFORMATION
  Report Type: 
  Country: None (occurrence: None)
  Receive Date: 20050819
  Receipt Date: 20050809
  Transmission Date: 20060218
  Serious: Yes (Other)
  Sender: FDA-Public Use
  Company Number: AT-ROCHE-413365

PATIENT
  Age: 61 Year
  Sex: Male
  Weight: 86 kg

DRUGS (5)
  1. CAPECITABINE [Suspect]
     Dosage: GIVEN ON DAYS 1 - 14 OF A 3 WEEK CYCLE.
     Route: 048
     Dates: start: 20050620
  2. BEVACIZUMAB [Suspect]
     Route: 042
     Dates: start: 20050620
  3. OXALIPLATIN [Suspect]
     Route: 042
     Dates: start: 20050620
  4. CONCOR [Concomitant]
     Dates: start: 20050415
  5. PANTOPRAZOLE SODIUM [Concomitant]

REACTIONS (2)
  - HYPERCHOLESTEROLAEMIA [None]
  - HYPERTRIGLYCERIDAEMIA [None]
